FAERS Safety Report 8284641-X (Version None)
Quarter: 2012Q2

REPORT INFORMATION
  Report Type: 
  Country: None (occurrence: None)
  Receive Date: 20120413
  Receipt Date: 20111229
  Transmission Date: 20120825
  Serious: No
  Sender: FDA-Public Use
  Company Number: US-ASTRAZENECA-2011SE79006

PATIENT
  Age: 55 Year
  Sex: Male
  Weight: 73.5 kg

DRUGS (5)
  1. SEROQUEL XR [Suspect]
     Indication: SLEEP DISORDER
     Route: 048
  2. NEXIUM [Suspect]
     Route: 048
  3. EFFEXOR [Concomitant]
  4. RANITIDINE [Concomitant]
  5. WARFARIN SODIUM [Concomitant]
     Indication: THROMBOSIS

REACTIONS (5)
  - OFF LABEL USE [None]
  - FATIGUE [None]
  - PARAESTHESIA [None]
  - HANGOVER [None]
  - RESTLESS LEGS SYNDROME [None]
